FAERS Safety Report 20394515 (Version 1)
Quarter: 2022Q1

REPORT INFORMATION
  Report Type: Spontaneous
  Country: GR (occurrence: GR)
  Receive Date: 20220129
  Receipt Date: 20220129
  Transmission Date: 20220423
  Serious: Yes (Other)
  Sender: FDA-Public Use
  Company Number: GR-NOVARTISPH-NVSC2022GR018116

PATIENT
  Sex: Female

DRUGS (1)
  1. ANAFRANIL [Suspect]
     Active Substance: CLOMIPRAMINE HYDROCHLORIDE
     Indication: Mental disorder
     Dosage: 75 MG (PER MONTH)
     Route: 065

REACTIONS (2)
  - Obsessive-compulsive disorder [Unknown]
  - Product availability issue [Unknown]
